FAERS Safety Report 4741173-0 (Version None)
Quarter: 2005Q3

REPORT INFORMATION
  Report Type: 
  Country: None (occurrence: None)
  Receive Date: 20050810
  Receipt Date: 20041217
  Transmission Date: 20060218
  Serious: No
  Sender: FDA-Public Use
  Company Number: US-GLAXOSMITHKLINE-A0537836A

PATIENT
  Sex: Female

DRUGS (9)
  1. PAXIL [Suspect]
     Indication: DEMENTIA
     Dosage: 220MG PER DAY
  2. CARDURA [Concomitant]
     Dosage: 2MG PER DAY
  3. LASIX [Concomitant]
     Dosage: 20MG PER DAY
  4. SYNTHROID [Concomitant]
     Dosage: 125.5MG PER DAY
  5. ABILIFY [Concomitant]
     Dosage: 5MG PER DAY
  6. POTASSIUM CHLORIDE [Concomitant]
     Dosage: 20MEQ PER DAY
  7. LISINOPRIL [Concomitant]
     Dosage: 15MG PER DAY
  8. ZOCOR [Concomitant]
     Dosage: 40MG PER DAY
  9. AMARYL [Concomitant]
     Dosage: 12MG PER DAY

REACTIONS (1)
  - OEDEMA PERIPHERAL [None]
